FAERS Safety Report 7115109-1 (Version None)
Quarter: 2010Q4

REPORT INFORMATION
  Report Type: 
  Country: None (occurrence: None)
  Receive Date: 20101116
  Receipt Date: 20101116
  Transmission Date: 20110411
  Serious: Yes (Hospitalization, Other)
  Sender: FDA-Public Use
  Company Number: None

PATIENT
  Age: 65 Year
  Sex: Male

DRUGS (1)
  1. LASIX [Suspect]
     Dosage: 40 MG PO DAILY
     Route: 048
     Dates: end: 20100829

REACTIONS (3)
  - HYPOKALAEMIA [None]
  - HYPOVOLAEMIA [None]
  - POLYURIA [None]
